FAERS Safety Report 8940752 (Version 1)
Quarter: 2012Q4

REPORT INFORMATION
  Report Type: 
  Country: BR (occurrence: BR)
  Receive Date: 20121203
  Receipt Date: 20121203
  Transmission Date: 20130627
  Serious: Yes (Other)
  Sender: FDA-Public Use
  Company Number: BR-PFIZER INC-2012300586

PATIENT
  Age: 58 Year
  Sex: Male

DRUGS (2)
  1. CELEBRA [Suspect]
     Indication: KNEE PAIN
     Dosage: 200 mg, 2x/day
     Route: 048
     Dates: start: 20101128
  2. OLMETEC HCT [Concomitant]
     Indication: BLOOD PRESSURE HIGH
     Dosage: 10mg olmesartan medoxomil/ 6.25mg hydrochlorothiazide) (half tablet), once a day
     Dates: start: 20121028

REACTIONS (1)
  - Knee operation [Unknown]
